FAERS Safety Report 15334384 (Version 5)
Quarter: 2019Q1

REPORT INFORMATION
  Report Type: Spontaneous
  Country: US (occurrence: US)
  Receive Date: 20180830
  Receipt Date: 20190320
  Transmission Date: 20190417
  Serious: Yes (Hospitalization, Other)
  Sender: FDA-Public Use
  Company Number: US-PFIZER INC-2018344443

PATIENT
  Age: 68 Year
  Sex: Male
  Weight: 95 kg

DRUGS (3)
  1. LYRICA [Suspect]
     Active Substance: PREGABALIN
     Indication: SLEEP DISORDER
  2. LYRICA [Suspect]
     Active Substance: PREGABALIN
     Indication: PAIN
  3. LYRICA [Suspect]
     Active Substance: PREGABALIN
     Indication: BACK DISORDER
     Dosage: 75 MG, 3X/DAY (AS NEEDED)
     Route: 048

REACTIONS (12)
  - Drug dependence [Not Recovered/Not Resolved]
  - Disturbance in social behaviour [Not Recovered/Not Resolved]
  - Dystonia [Unknown]
  - Dyskinesia [Not Recovered/Not Resolved]
  - Speech disorder [Unknown]
  - Abnormal behaviour [Not Recovered/Not Resolved]
  - Pre-existing condition improved [Unknown]
  - Intentional product misuse [Unknown]
  - Insomnia [Unknown]
  - Therapeutic response unexpected [Unknown]
  - Dry mouth [Unknown]
  - Agitation [Unknown]

NARRATIVE: CASE EVENT DATE: 20180822
